FAERS Safety Report 5907755-5 (Version None)
Quarter: 2008Q4

REPORT INFORMATION
  Report Type: 
  Country: None (occurrence: None)
  Receive Date: 20081003
  Receipt Date: 20081001
  Transmission Date: 20090506
  Serious: Yes (Death, Other)
  Sender: FDA-Public Use
  Company Number: GB-ASTRAZENECA-2008GB01485

PATIENT
  Age: 23716 Day
  Sex: Female

DRUGS (3)
  1. QUETIAPINE FUMARATE [Suspect]
     Indication: BIPOLAR DISORDER
     Route: 048
     Dates: start: 20080429
  2. SERTRALINE [Concomitant]
     Indication: AFFECTIVE DISORDER
     Route: 048
     Dates: start: 20080704
  3. AMANTADINE [Concomitant]
     Indication: PARKINSON'S DISEASE
     Route: 048
     Dates: start: 20080701

REACTIONS (2)
  - DEATH [None]
  - FALL [None]
